FAERS Safety Report 8443340-1 (Version None)
Quarter: 2012Q2

REPORT INFORMATION
  Report Type: 
  Country: None (occurrence: None)
  Receive Date: 20120618
  Receipt Date: 20120606
  Transmission Date: 20120825
  Serious: Yes (Death, Hospitalization, Other)
  Sender: FDA-Public Use
  Company Number: JP-BRISTOL-MYERS SQUIBB COMPANY-14775191

PATIENT
  Age: 60 Year
  Sex: Male
  Weight: 55 kg

DRUGS (10)
  1. POTASSIUM ASPARTATE [Concomitant]
     Route: 048
  2. URSO 250 [Concomitant]
     Route: 048
  3. LENDORMIN [Concomitant]
     Dosage: TABS
     Route: 048
     Dates: start: 20100315
  4. ZOPICLONE [Concomitant]
     Dosage: ALSO FROM 18FEB10-14MAR10
     Route: 048
     Dates: start: 20090520
  5. DIOVAN [Concomitant]
     Dosage: FROM 27JUN09-19JAN10;20JAN10-26JAN10(40MG)TABS
     Route: 048
     Dates: start: 20090627
  6. LASIX [Concomitant]
     Route: 048
  7. SPRYCEL [Suspect]
     Indication: CHRONIC MYELOID LEUKAEMIA
     Dosage: DOSE REDUCED 40MG/D(12MAY09-28MAY10, 60MG/D(29MAY10-16DEC10), 40MG/D(19DEC10-22DEC10)
     Route: 048
     Dates: start: 20090512
  8. SENNOSIDE [Concomitant]
     Route: 048
     Dates: start: 20090521
  9. ALLOPURINOL [Concomitant]
     Dosage: FROM UNK-22APR10;ALSO FROM 23APR10-ONG(200MG)TABS
     Route: 048
  10. FORSENID [Concomitant]
     Dosage: TABS
     Route: 048
     Dates: start: 20100311

REACTIONS (7)
  - LIVER DISORDER [None]
  - DIARRHOEA [None]
  - PLEURAL EFFUSION [None]
  - VOMITING [None]
  - PLATELET COUNT DECREASED [None]
  - NEOPLASM MALIGNANT [None]
  - ANAEMIA [None]
